FAERS Safety Report 7119137-1 (Version None)
Quarter: 2010Q4

REPORT INFORMATION
  Report Type: 
  Country: None (occurrence: None)
  Receive Date: 20101123
  Receipt Date: 20100125
  Transmission Date: 20110411
  Serious: No
  Sender: FDA-Public Use
  Company Number: US-MYLANLABS-2010S1001392

PATIENT
  Age: 86 Year
  Sex: Female
  Weight: 57.61 kg

DRUGS (8)
  1. AMLODIPINE BESYLATE [Suspect]
     Indication: BLOOD PRESSURE INCREASED
     Route: 048
     Dates: start: 20090701
  2. SYNTHROID [Concomitant]
  3. AMITRIPTYLINE HCL [Concomitant]
  4. TRAMADOL HCL [Concomitant]
  5. HYDROCODONE [Concomitant]
  6. KLOR-CON [Concomitant]
  7. ZOLOFT [Concomitant]
  8. CLONIDINE [Concomitant]

REACTIONS (3)
  - ERYTHEMA [None]
  - MYALGIA [None]
  - OEDEMA [None]
